FAERS Safety Report 9735512 (Version 2)
Quarter: 2013Q4

REPORT INFORMATION
  Report Type: Spontaneous
  Country: US (occurrence: US)
  Receive Date: 20131206
  Receipt Date: 20131206
  Transmission Date: 20140711
  Serious: No
  Sender: FDA-Public Use
  Company Number: US-GILEAD-2009-0023306

PATIENT
  Age: 58 Year
  Sex: Male

DRUGS (15)
  1. LETAIRIS [Suspect]
     Indication: COR PULMONALE CHRONIC
     Route: 048
     Dates: start: 20090625
  2. ASPIRIN [Concomitant]
  3. PLAVIX [Concomitant]
  4. LASIX [Concomitant]
  5. SPIRONOLACTONE [Concomitant]
  6. COREG [Concomitant]
  7. RAMIPRIL [Concomitant]
  8. LIPITOR [Concomitant]
  9. KLOR-CON [Concomitant]
  10. GLYSET [Concomitant]
  11. NIASPAN [Concomitant]
  12. ACTOS [Concomitant]
  13. PRANDIN [Concomitant]
  14. ALLOPURINOL [Concomitant]
  15. COLCHICINE [Concomitant]

REACTIONS (1)
  - Dizziness [Not Recovered/Not Resolved]
